FAERS Safety Report 7569468-6 (Version None)
Quarter: 2011Q2

REPORT INFORMATION
  Report Type: 
  Country: None (occurrence: None)
  Receive Date: 20110624
  Receipt Date: 20110617
  Transmission Date: 20111010
  Serious: Yes (Hospitalization)
  Sender: FDA-Public Use
  Company Number: US-BIOGENIDEC-2010BI012170

PATIENT
  Sex: Female

DRUGS (3)
  1. AVONEX [Suspect]
     Indication: MULTIPLE SCLEROSIS
     Route: 030
     Dates: start: 20080312
  2. PROZAC [Concomitant]
     Indication: DEPRESSION
  3. MEDICATION (NOS) [Concomitant]
     Indication: GASTROOESOPHAGEAL REFLUX DISEASE

REACTIONS (7)
  - TOOTH INFECTION [None]
  - BLOOD CHOLESTEROL INCREASED [None]
  - UTERINE HAEMORRHAGE [None]
  - HYSTERECTOMY [None]
  - ISCHAEMIC STROKE [None]
  - ANTIPHOSPHOLIPID SYNDROME [None]
  - HYPERTENSION [None]
